FAERS Safety Report 15291673 (Version 1)
Quarter: 2018Q3

REPORT INFORMATION
  Report Type: Spontaneous
  Country: PL (occurrence: PL)
  Receive Date: 20180817
  Receipt Date: 20180817
  Transmission Date: 20181010
  Serious: Yes (Other)
  Sender: FDA-Public Use
  Company Number: PL-TEVA-2018-PL-943309

PATIENT
  Age: 54 Year
  Sex: Female

DRUGS (3)
  1. DAUNORUBICIN [Concomitant]
     Active Substance: DAUNORUBICIN
  2. CLADRIBINE. [Concomitant]
     Active Substance: CLADRIBINE
  3. CYTARABINE. [Suspect]
     Active Substance: CYTARABINE
     Dosage: DAC SCHEME: DAUNORUBICIN, CYTARABINE, CLADRIBINE

REACTIONS (1)
  - Pancytopenia [Recovered/Resolved]
